FAERS Safety Report 6144964-7 (Version None)
Quarter: 2009Q2

REPORT INFORMATION
  Report Type: 
  Country: None (occurrence: None)
  Receive Date: 20090402
  Receipt Date: 20090402
  Transmission Date: 20091009
  Serious: Yes (Other)
  Sender: FDA-Public Use
  Company Number: None

PATIENT
  Age: 52 Year
  Sex: Female
  Weight: 79.3795 kg

DRUGS (1)
  1. CYMBALTA [Suspect]
     Indication: DEPRESSION
     Dosage: 15/30MG DAILY PO
     Route: 048
     Dates: start: 20090322, end: 20090326

REACTIONS (8)
  - ABDOMINAL PAIN [None]
  - ANOREXIA [None]
  - DIARRHOEA [None]
  - DYSGEUSIA [None]
  - INSOMNIA [None]
  - NAUSEA [None]
  - PRODUCT QUALITY ISSUE [None]
  - TINNITUS [None]
